FAERS Safety Report 7151206-2 (Version None)
Quarter: 2010Q4

REPORT INFORMATION
  Report Type: 
  Country: None (occurrence: None)
  Receive Date: 20101124
  Receipt Date: 20101109
  Transmission Date: 20110411
  Serious: Yes (Hospitalization)
  Sender: FDA-Public Use
  Company Number: 2010US004292

PATIENT
  Age: 51 Year
  Sex: Male

DRUGS (4)
  1. PROGRAF [Suspect]
     Indication: RENAL AND PANCREAS TRANSPLANT
     Dosage: 6 MG, UID/QD, ORAL
     Route: 048
  2. METHYLPREDNISOLONE [Concomitant]
  3. CITALOPRAM (CITALOPRAM) PIL [Concomitant]
  4. OMEPRAZOLE (OMEPRAZOLE) PILL [Concomitant]

REACTIONS (3)
  - HAEMORRHAGE [None]
  - TESTICULAR CYST [None]
  - URINARY RETENTION [None]
